FAERS Safety Report 23098372 (Version 1)
Quarter: 2023Q4

REPORT INFORMATION
  Report Type: Report from Study
  Country: US (occurrence: US)
  Receive Date: 20231023
  Receipt Date: 20231023
  Transmission Date: 20240109
  Serious: Yes (Other)
  Sender: FDA-Public Use
  Company Number: US-Rhythm Pharmaceuticals, Inc.-2022RHM000165

PATIENT
  Age: 15 Year
  Sex: Female

DRUGS (5)
  1. IMCIVREE [Suspect]
     Active Substance: SETMELANOTIDE
     Indication: Laurence-Moon-Bardet-Biedl syndrome
     Route: 058
  2. IMCIVREE [Suspect]
     Active Substance: SETMELANOTIDE
     Route: 058
  3. IMCIVREE [Suspect]
     Active Substance: SETMELANOTIDE
     Route: 058
     Dates: end: 20230102
  4. VITAMIN D3 [Concomitant]
     Active Substance: CHOLECALCIFEROL
     Indication: Product used for unknown indication
     Route: 065
  5. MELATONIN [Concomitant]
     Active Substance: MELATONIN
     Indication: Product used for unknown indication
     Route: 065

REACTIONS (17)
  - Hypersensitivity [Unknown]
  - Dyspnoea [Unknown]
  - Throat tightness [Unknown]
  - Lip discolouration [Unknown]
  - Apathy [Unknown]
  - Weight decreased [Unknown]
  - Hypophagia [Unknown]
  - Hunger [Unknown]
  - Food craving [Unknown]
  - Ocular hyperaemia [Unknown]
  - Paraesthesia [Unknown]
  - Off label use [Recovered/Resolved]
  - Product dose omission issue [Unknown]
  - Nail pigmentation [Unknown]
  - Skin discolouration [Unknown]
  - Headache [Recovered/Resolved]
  - Injection site pain [Recovering/Resolving]

NARRATIVE: CASE EVENT DATE: 20221118
